FAERS Safety Report 11642582 (Version 2)
Quarter: 2016Q1

REPORT INFORMATION
  Report Type: Report from Study
  Country: US (occurrence: US)
  Receive Date: 20151020
  Receipt Date: 20160328
  Transmission Date: 20160525
  Serious: Yes (Other)
  Sender: FDA-Public Use
  Company Number: US-AMGEN-USASL2015107418

PATIENT
  Age: 64 Year
  Sex: Female

DRUGS (2)
  1. HUMIRA [Suspect]
     Active Substance: ADALIMUMAB
     Indication: PRODUCT USED FOR UNKNOWN INDICATION
     Dosage: UNK UNK, 2 TIMES/WK
     Route: 065
  2. ENBREL [Suspect]
     Active Substance: ETANERCEPT
     Indication: PRODUCT USED FOR UNKNOWN INDICATION
     Dosage: 25 MG, 2 TIMES/WK
     Route: 065

REACTIONS (7)
  - Herpes zoster [Unknown]
  - Condition aggravated [Unknown]
  - Knee arthroplasty [Unknown]
  - Immune system disorder [Unknown]
  - Inappropriate schedule of drug administration [Unknown]
  - Metabolic disorder [Unknown]
  - Nasopharyngitis [Unknown]
